FAERS Safety Report 6300921-9 (Version None)
Quarter: 2009Q3

REPORT INFORMATION
  Report Type: 
  Country: None (occurrence: None)
  Receive Date: 20090806
  Receipt Date: 20090806
  Transmission Date: 20100115
  Serious: No
  Sender: FDA-Public Use
  Company Number: None

PATIENT
  Age: 63 Year
  Sex: Female

DRUGS (3)
  1. CLIMARA [Suspect]
     Indication: HORMONE REPLACEMENT THERAPY
     Dosage: 0.0375 1QWK
     Dates: start: 20061001
  2. CLIMARA [Suspect]
     Indication: HOT FLUSH
     Dosage: 0.0375 1QWK
     Dates: start: 20061001
  3. CLIMARA [Suspect]
     Indication: MENOPAUSE
     Dosage: 0.0375 1QWK
     Dates: start: 20061001

REACTIONS (1)
  - DERMATITIS CONTACT [None]
